FAERS Safety Report 22587814 (Version 1)
Quarter: 2023Q2

REPORT INFORMATION
  Report Type: Report from Study
  Country: CN (occurrence: CN)
  Receive Date: 20230612
  Receipt Date: 20230612
  Transmission Date: 20230722
  Serious: Yes (Other)
  Sender: FDA-Public Use
  Company Number: CN-PFIZER INC-202300213317

PATIENT
  Age: 28 Year
  Sex: Male
  Weight: 62 kg

DRUGS (3)
  1. VORICONAZOLE [Suspect]
     Active Substance: VORICONAZOLE
     Indication: Infection
     Dosage: Q12H (LOADING DOSE)
     Route: 041
  2. VORICONAZOLE [Suspect]
     Active Substance: VORICONAZOLE
     Dosage: Q12H MAINTANANCE DOSE
     Route: 041
  3. VORICONAZOLE [Suspect]
     Active Substance: VORICONAZOLE
     Dosage: Q12H (ADJUSTED DOSE)
     Route: 041

REACTIONS (2)
  - Liver injury [Recovering/Resolving]
  - Illusion [Recovered/Resolved]
